FAERS Safety Report 5065464-1 (Version None)
Quarter: 2006Q3

REPORT INFORMATION
  Report Type: 
  Country: None (occurrence: None)
  Receive Date: 20060706
  Receipt Date: 20050411
  Transmission Date: 20061208
  Serious: Yes (Hospitalization)
  Sender: FDA-Public Use
  Company Number: 1786

PATIENT
  Age: 40 Year
  Sex: Male

DRUGS (1)
  1. AVINZA [Suspect]

REACTIONS (3)
  - APNOEA [None]
  - RENAL FAILURE [None]
  - THINKING ABNORMAL [None]
